FAERS Safety Report 22183160 (Version 1)
Quarter: 2023Q2

REPORT INFORMATION
  Report Type: Spontaneous
  Country: US (occurrence: US)
  Receive Date: 20230406
  Receipt Date: 20230406
  Transmission Date: 20230721
  Serious: No
  Sender: FDA-Public Use
  Company Number: US-Evolus, Inc.-2023EV000034

PATIENT
  Sex: Female

DRUGS (2)
  1. JEUVEAU [Suspect]
     Active Substance: PRABOTULINUMTOXINA-XVFS
     Indication: Skin wrinkling
     Dosage: 4 UNITS IN GLABELLA REGION (2 UNITS BILATERIAL CORRUGATOR), 2 UNITS 4X ACROSS FOREHEAD
     Dates: start: 20230126, end: 20230126
  2. JEUVEAU [Suspect]
     Active Substance: PRABOTULINUMTOXINA-XVFS
     Indication: Product used for unknown indication

REACTIONS (2)
  - Skin wrinkling [Not Recovered/Not Resolved]
  - Off label use [Unknown]

NARRATIVE: CASE EVENT DATE: 20230126
